FAERS Safety Report 5856145-2 (Version None)
Quarter: 2008Q3

REPORT INFORMATION
  Report Type: 
  Country: None (occurrence: None)
  Receive Date: 20080821
  Receipt Date: 20080806
  Transmission Date: 20090109
  Serious: Yes (Other)
  Sender: FDA-Public Use
  Company Number: 2008S1014062

PATIENT
  Sex: Female

DRUGS (1)
  1. CLARUS (ISOTRETINOIN) (40 MG) [Suspect]
     Dosage: 40 MG;DAILY; ORAL; 60 MG;DAILY; ORAL; 80 MG;DAILY;ORAL
     Route: 048

REACTIONS (2)
  - DRUG EXPOSURE BEFORE PREGNANCY [None]
  - UNINTENDED PREGNANCY [None]
